FAERS Safety Report 10672372 (Version 1)
Quarter: 2014Q4

REPORT INFORMATION
  Report Type: Spontaneous
  Country: US (occurrence: US)
  Receive Date: 20141223
  Receipt Date: 20141223
  Transmission Date: 20150529
  Serious: Yes (Other)
  Sender: FDA-Public Use
  Company Number: US-BAYER-2014-185700

PATIENT
  Age: 68 Year
  Sex: Female
  Weight: 56 kg

DRUGS (6)
  1. ADVIL [Suspect]
     Active Substance: IBUPROFEN
     Indication: TENOSYNOVITIS
     Dosage: UNK
     Dates: start: 20141026, end: 20141030
  2. TEGRETOL [Concomitant]
     Active Substance: CARBAMAZEPINE
     Indication: SEIZURE
     Dosage: 800 MG, TID
  3. ALEVE [Suspect]
     Active Substance: NAPROXEN SODIUM
     Indication: TENOSYNOVITIS
     Dosage: UNK
     Dates: start: 20141107, end: 201411
  4. OMEPRAZOLE. [Suspect]
     Active Substance: OMEPRAZOLE
     Indication: DYSPEPSIA
     Dosage: UNK
     Dates: start: 20141109
  5. ALEVE [Suspect]
     Active Substance: NAPROXEN SODIUM
     Indication: TENOSYNOVITIS
     Dosage: UNK
     Dates: start: 20141031, end: 20141101
  6. ADVIL [Suspect]
     Active Substance: IBUPROFEN
     Indication: TENOSYNOVITIS
     Dosage: UNK
     Dates: start: 20141111

REACTIONS (6)
  - Dyspepsia [Not Recovered/Not Resolved]
  - Chest pain [None]
  - Arthritis [None]
  - Inflammation [None]
  - Seizure [None]
  - Motor dysfunction [None]

NARRATIVE: CASE EVENT DATE: 2014
